FAERS Safety Report 5381282-9 (Version None)
Quarter: 2007Q3

REPORT INFORMATION
  Report Type: 
  Country: None (occurrence: None)
  Receive Date: 20070702
  Receipt Date: 20070321
  Transmission Date: 20080115
  Serious: Yes (Hospitalization)
  Sender: FDA-Public Use
  Company Number: SPV1-2007-01663

PATIENT
  Age: 13 Year
  Sex: Male

DRUGS (12)
  1. PENTASA [Suspect]
     Dosage: 1500 MG DAILY, ORAL
     Route: 048
  2. FOSCAVIR [Suspect]
     Dosage: 3.5 MG DAILY, INTRAVENOUS
     Route: 042
  3. SOLU-MEDROL [Suspect]
     Dosage: 40 MG DAILY, INTRAVENOUS
     Route: 042
  4. GLEEVEC [Suspect]
     Indication: ACUTE LEUKAEMIA
     Dosage: 400 MG DAILY, ORAL
     Route: 048
     Dates: start: 20070123
  5. MOPRAL                                (OMEPRAZOLE) [Suspect]
     Dosage: 40 MG DAILY, ORAL
     Route: 048
  6. ALIZAPRIDE HYDROCHLORIDE                     (ALIZAPRIDE HYDROCHLORIDE [Concomitant]
  7. ITRACONAZOLE [Concomitant]
  8. IMMUNE GLOBULIN INTRAVENOUS (HUMAN) [Concomitant]
  9. NALBUPHINE [Concomitant]
  10. BUDESONIDE [Concomitant]
  11. VALACYCLOVIR [Concomitant]
  12. PARENTAMIN-C-HEPA [Concomitant]

REACTIONS (2)
  - BLOOD AMYLASE INCREASED [None]
  - PANCREATITIS [None]
